FAERS Safety Report 8812974 (Version 2)
Quarter: 2012Q4

REPORT INFORMATION
  Report Type: 
  Country: US (occurrence: US)
  Receive Date: 20120927
  Receipt Date: 20121219
  Transmission Date: 20130627
  Serious: Yes (Hospitalization)
  Sender: FDA-Public Use
  Company Number: US-AMGEN-USASP2012040287

PATIENT
  Sex: Male
  Weight: 89.34 kg

DRUGS (9)
  1. XGEVA [Suspect]
     Indication: PROPHYLAXIS
     Dosage: 120 mg, q4wk
     Route: 058
     Dates: start: 20111226
  2. MS CONTIN [Concomitant]
     Indication: CANCER PAIN
     Dosage: 30 mg, bid
     Route: 048
  3. MORPHINE [Concomitant]
     Indication: CANCER PAIN
     Dosage: 15 mg, q6h
     Route: 048
  4. METFORMIN [Concomitant]
     Indication: DIABETES MELLITUS
     Dosage: 1000 mg, bid
     Route: 048
  5. LISINOPRIL [Concomitant]
     Indication: HYPERTENSION
     Dosage: 20 mg, qd
     Route: 048
  6. ZOLOFT [Concomitant]
     Indication: DEPRESSION
     Dosage: 200 mg, qd
     Route: 048
  7. CALCIUM [Concomitant]
     Indication: HYPOCALCAEMIA
     Route: 048
  8. CALCIUM [Concomitant]
     Route: 042
  9. VITAMIN D                          /00318501/ [Concomitant]

REACTIONS (1)
  - Hypocalcaemia [Recovered/Resolved]
